FAERS Safety Report 22386107 (Version 1)
Quarter: 2023Q2

REPORT INFORMATION
  Report Type: Spontaneous
  Country: RO (occurrence: RO)
  Receive Date: 20230530
  Receipt Date: 20230530
  Transmission Date: 20230721
  Serious: Yes (Life-Threatening)
  Sender: FDA-Public Use
  Company Number: RO-BAUSCH-BL-2023-007883

PATIENT
  Age: 65 Year
  Sex: Male
  Weight: 100 kg

DRUGS (2)
  1. RIFAXIMIN [Suspect]
     Active Substance: RIFAXIMIN
     Indication: Dyspepsia
     Dosage: (1 DOSAGE FORM, IN 3 DAY)
     Route: 048
     Dates: start: 20230429, end: 20230504
  2. TRAMADOL [Concomitant]
     Active Substance: TRAMADOL
     Indication: Dyspepsia
     Dosage: (1 DOSAGE FORM, IN 3 DAY)
     Route: 048
     Dates: start: 20230429, end: 20230505

REACTIONS (4)
  - Flatulence [Not Recovered/Not Resolved]
  - Hyperhidrosis [Not Recovered/Not Resolved]
  - Chills [Not Recovered/Not Resolved]
  - Intentional product misuse [Not Recovered/Not Resolved]

NARRATIVE: CASE EVENT DATE: 20230502
